FAERS Safety Report 13458325 (Version 2)
Quarter: 2017Q2

REPORT INFORMATION
  Report Type: Spontaneous
  Country: US (occurrence: US)
  Receive Date: 20170419
  Receipt Date: 20170503
  Transmission Date: 20170830
  Serious: No
  Sender: FDA-Public Use
  Company Number: US-SHIRE-US201708935

PATIENT
  Sex: Female

DRUGS (1)
  1. XIIDRA [Suspect]
     Active Substance: LIFITEGRAST
     Indication: DRY EYE
     Dosage: UNK, UNKNOWN
     Route: 047

REACTIONS (3)
  - Instillation site discharge [Recovered/Resolved]
  - Instillation site swelling [Unknown]
  - Lacrimation increased [Not Recovered/Not Resolved]
